FAERS Safety Report 6540183-0 (Version None)
Quarter: 2010Q1

REPORT INFORMATION
  Report Type: 
  Country: None (occurrence: None)
  Receive Date: 20100115
  Receipt Date: 20100105
  Transmission Date: 20100710
  Serious: Yes (Other)
  Sender: FDA-Public Use
  Company Number: US-WATSON-2010-00043

PATIENT

DRUGS (9)
  1. PROPAFENONE (WATSON LABORATORIES) [Suspect]
     Indication: ATRIAL FIBRILLATION
     Dosage: UNK
     Route: 048
  2. PROPAFENONE (WATSON LABORATORIES) [Suspect]
     Dosage: UNK
     Route: 048
  3. PROPAFENONE (WATSON LABORATORIES) [Suspect]
     Dosage: 75 MG, UNK
     Route: 048
  4. PROPAFENONE (WATSON LABORATORIES) [Suspect]
     Dosage: 300 MG, UNK
     Route: 048
  5. PROPAFENONE HCL [Suspect]
     Indication: ATRIAL FIBRILLATION
     Dosage: UNK
     Route: 048
  6. PROPAFENONE HCL [Suspect]
     Dosage: UNK
     Route: 048
  7. PROPAFENONE HCL [Suspect]
     Dosage: UNK
     Route: 048
  8. PROPAFENONE HCL [Suspect]
     Dosage: 75 MG, UNK
     Route: 048
  9. PROPAFENONE HCL [Suspect]
     Dosage: 300 MG, UNK
     Route: 048

REACTIONS (14)
  - ABDOMINAL PAIN [None]
  - ASTHENIA [None]
  - ATRIAL FIBRILLATION [None]
  - CHEST DISCOMFORT [None]
  - DEHYDRATION [None]
  - DIZZINESS [None]
  - DRUG INEFFECTIVE [None]
  - HEADACHE [None]
  - HEART RATE INCREASED [None]
  - HYPERHIDROSIS [None]
  - HYPOTENSION [None]
  - MALAISE [None]
  - PULSE PRESSURE DECREASED [None]
  - SYNCOPE [None]
